FAERS Safety Report 8509505 (Version 4)
Quarter: 2012Q4

REPORT INFORMATION
  Report Type: 
  Country: US (occurrence: US)
  Receive Date: 20120413
  Receipt Date: 20120927
  Transmission Date: 20130627
  Serious: Yes (Other)
  Sender: FDA-Public Use
  Company Number: US-BRISTOL-MYERS SQUIBB COMPANY-16507568

PATIENT
  Age: 60 Year
  Sex: Male
  Weight: 129 kg

DRUGS (23)
  1. REYATAZ [Suspect]
     Indication: HIV INFECTION
     Dosage: Start date 04Jan12
     Route: 048
     Dates: start: 201201, end: 20120828
  2. PROTONIX [Concomitant]
     Dosage: 40 mg
  3. NORVIR [Concomitant]
  4. METOPROLOL [Concomitant]
  5. LISINOPRIL [Concomitant]
  6. ATRIPLA [Concomitant]
  7. NIASPAN [Concomitant]
  8. ASPIRIN [Concomitant]
     Dosage: Safety coated
  9. ZETIA [Concomitant]
  10. AMITRIPTYLINE [Concomitant]
  11. ADVAIR [Concomitant]
     Dosage: 1DF= 100/50
  12. CLARINEX [Concomitant]
  13. NASONEX [Concomitant]
  14. BLEPHAMIDE [Concomitant]
     Dosage: Opth suspension
     Route: 047
  15. MUPIROCIN [Concomitant]
     Dosage: Ointment
  16. LOPROX [Concomitant]
     Dosage: 1% Shampoo
  17. TRIAMCINOLONE ACETONIDE [Concomitant]
     Dosage: 0.1% ointment
  18. KETOCONAZOLE [Concomitant]
     Dosage: ointment
  19. FISH OIL [Concomitant]
  20. SAW PALMETTO [Concomitant]
  21. GREEN TEA [Concomitant]
  22. PUMPKIN SEED OIL [Concomitant]
  23. GINGER [Concomitant]

REACTIONS (2)
  - Drug ineffective [Recovering/Resolving]
  - Headache [Unknown]
